FAERS Safety Report 20097966 (Version 2)
Quarter: 2021Q4

REPORT INFORMATION
  Report Type: Spontaneous
  Country: US (occurrence: US)
  Receive Date: 20211122
  Receipt Date: 20211203
  Transmission Date: 20220303
  Serious: Yes (Hospitalization, Other)
  Sender: FDA-Public Use
  Company Number: US-BAYER-2021A251284

PATIENT
  Age: 20 Year
  Sex: Female

DRUGS (1)
  1. MIRENA [Suspect]
     Active Substance: LEVONORGESTREL
     Dosage: 20?G/DAY
     Route: 015

REACTIONS (13)
  - Uterine perforation [None]
  - Abdominal pain [None]
  - Medical device discomfort [None]
  - Complication of device removal [None]
  - Adverse drug reaction [None]
  - Quality of life decreased [None]
  - Headache [None]
  - Vaginal haemorrhage [None]
  - Nausea [None]
  - Dizziness [None]
  - Vomiting [None]
  - Feeling abnormal [None]
  - Malaise [None]
